FAERS Safety Report 13936808 (Version 2)
Quarter: 2017Q4

REPORT INFORMATION
  Report Type: Report from Study
  Country: JP (occurrence: JP)
  Receive Date: 20170905
  Receipt Date: 20171109
  Transmission Date: 20180320
  Serious: Yes (Death, Hospitalization, Other)
  Sender: FDA-Public Use
  Company Number: PHJP2017JP027264

PATIENT
  Sex: Female

DRUGS (25)
  1. ARZERRA [Suspect]
     Active Substance: OFATUMUMAB
     Dosage: 2000 MG, UNK
     Route: 041
     Dates: start: 20151225
  2. SOLU-MEDROL [Concomitant]
     Active Substance: METHYLPREDNISOLONE SODIUM SUCCINATE
     Dosage: 125 MG, UNK
     Route: 065
     Dates: start: 20160111
  3. ACETAMINOPHEN. [Concomitant]
     Active Substance: ACETAMINOPHEN
     Indication: PREMEDICATION
     Dosage: 200 MG, UNK
     Route: 065
     Dates: start: 20151216
  4. ACETAMINOPHEN. [Concomitant]
     Active Substance: ACETAMINOPHEN
     Dosage: 200 MG, UNK
     Route: 065
     Dates: start: 20160104
  5. CHLOR-TRIMETON [Concomitant]
     Active Substance: CHLORPHENIRAMINE MALEATE
     Dosage: 10 MG, UNK
     Route: 065
     Dates: start: 20160104
  6. ARZERRA [Suspect]
     Active Substance: OFATUMUMAB
     Dosage: 2000 MG, UNK
     Route: 041
     Dates: start: 20160126
  7. CHLOR-TRIMETON [Concomitant]
     Active Substance: CHLORPHENIRAMINE MALEATE
     Indication: PREMEDICATION
     Dosage: 10 MG, UNK
     Route: 065
     Dates: start: 20151216
  8. ARZERRA [Suspect]
     Active Substance: OFATUMUMAB
     Indication: CHRONIC LYMPHOCYTIC LEUKAEMIA
     Dosage: 300 MG, UNK
     Route: 041
     Dates: start: 20151216
  9. ARZERRA [Suspect]
     Active Substance: OFATUMUMAB
     Dosage: 2000 MG, UNK
     Route: 041
     Dates: start: 20160104
  10. ARZERRA [Suspect]
     Active Substance: OFATUMUMAB
     Dosage: 2000 MG, UNK
     Route: 041
     Dates: start: 20160202
  11. CHLOR-TRIMETON [Concomitant]
     Active Substance: CHLORPHENIRAMINE MALEATE
     Dosage: 10 MG, UNK
     Route: 065
     Dates: start: 20160111
  12. ARZERRA [Suspect]
     Active Substance: OFATUMUMAB
     Dosage: 2000 MG, UNK
     Route: 041
     Dates: start: 20160111
  13. SOLU-MEDROL [Concomitant]
     Active Substance: METHYLPREDNISOLONE SODIUM SUCCINATE
     Indication: PREMEDICATION
     Dosage: 125 MG, UNK
     Route: 065
     Dates: start: 20151216
  14. SOLU-MEDROL [Concomitant]
     Active Substance: METHYLPREDNISOLONE SODIUM SUCCINATE
     Dosage: 125 MG, UNK
     Route: 065
     Dates: start: 20160104
  15. ACETAMINOPHEN. [Concomitant]
     Active Substance: ACETAMINOPHEN
     Dosage: 200 MG, UNK
     Route: 065
     Dates: start: 20160111
  16. CHLOR-TRIMETON [Concomitant]
     Active Substance: CHLORPHENIRAMINE MALEATE
     Dosage: 10 MG, UNK
     Route: 065
     Dates: start: 20151225
  17. SOLU-MEDROL [Concomitant]
     Active Substance: METHYLPREDNISOLONE SODIUM SUCCINATE
     Dosage: 125 MG, UNK
     Route: 065
     Dates: start: 20160202
  18. ACETAMINOPHEN. [Concomitant]
     Active Substance: ACETAMINOPHEN
     Dosage: 200 MG, UNK
     Route: 065
     Dates: start: 20151225
  19. CHLOR-TRIMETON [Concomitant]
     Active Substance: CHLORPHENIRAMINE MALEATE
     Dosage: 10 MG, UNK
     Route: 065
     Dates: start: 20160202
  20. SOLU-MEDROL [Concomitant]
     Active Substance: METHYLPREDNISOLONE SODIUM SUCCINATE
     Dosage: 125 MG, UNK
     Route: 065
     Dates: start: 20160126
  21. CHLOR-TRIMETON [Concomitant]
     Active Substance: CHLORPHENIRAMINE MALEATE
     Dosage: 10 MG, UNK
     Route: 065
     Dates: start: 20160126
  22. BAKTAR [Concomitant]
     Active Substance: SULFAMETHOXAZOLE\TRIMETHOPRIM
     Indication: INFECTION PROPHYLAXIS
     Dosage: 1 DF, UNK
     Route: 048
  23. SOLU-MEDROL [Concomitant]
     Active Substance: METHYLPREDNISOLONE SODIUM SUCCINATE
     Dosage: 125 MG, UNK
     Route: 065
     Dates: start: 20151225
  24. ACETAMINOPHEN. [Concomitant]
     Active Substance: ACETAMINOPHEN
     Dosage: 200 MG, UNK
     Route: 065
     Dates: start: 20160126
  25. ACETAMINOPHEN. [Concomitant]
     Active Substance: ACETAMINOPHEN
     Dosage: 200 MG, UNK
     Route: 065
     Dates: start: 20160202

REACTIONS (6)
  - Pneumonia [Fatal]
  - Hyperuricaemia [Unknown]
  - Anaemia [Not Recovered/Not Resolved]
  - Neutrophil count decreased [Not Recovered/Not Resolved]
  - Tumour lysis syndrome [Recovered/Resolved]
  - Hyperkalaemia [Unknown]

NARRATIVE: CASE EVENT DATE: 20151217
